FAERS Safety Report 14240971 (Version 12)
Quarter: 2018Q3

REPORT INFORMATION
  Report Type: Spontaneous
  Country: US (occurrence: US)
  Receive Date: 20171130
  Receipt Date: 20180918
  Transmission Date: 20181010
  Serious: Yes (Death, Hospitalization)
  Sender: FDA-Public Use
  Company Number: US-ACTELION-A-US2017-163265

PATIENT
  Age: 19 Year
  Sex: Female
  Weight: 54.42 kg

DRUGS (6)
  1. ADCIRCA [Concomitant]
     Active Substance: TADALAFIL
  2. ADEMPAS [Suspect]
     Active Substance: RIOCIGUAT
     Indication: PULMONARY ARTERIAL HYPERTENSION
     Dosage: 2.5 MG, TID
     Route: 048
     Dates: start: 201606, end: 20180826
  3. VELETRI [Suspect]
     Active Substance: EPOPROSTENOL
     Indication: PULMONARY ARTERIAL HYPERTENSION
     Dosage: 68 NG/KG, PER MIN
     Route: 042
     Dates: start: 20170106, end: 20180826
  4. LETAIRIS [Suspect]
     Active Substance: AMBRISENTAN
     Indication: PULMONARY ARTERIAL HYPERTENSION
     Dosage: 10 MG, QD
     Route: 048
     Dates: start: 20120707, end: 20180826
  5. ADEMPAS [Suspect]
     Active Substance: RIOCIGUAT
     Dosage: 1.5 MG, UNK
     Route: 065
  6. COUMADIN [Concomitant]
     Active Substance: WARFARIN SODIUM

REACTIONS (16)
  - Renal failure [Fatal]
  - Acute kidney injury [Unknown]
  - Dyspnoea [Unknown]
  - Cough [Unknown]
  - Abdominal distension [Unknown]
  - Catheter site haemorrhage [Unknown]
  - Unevaluable event [Unknown]
  - Pain in jaw [Not Recovered/Not Resolved]
  - Right ventricular failure [Fatal]
  - Respiratory tract infection [Unknown]
  - Nausea [Unknown]
  - Haemoptysis [Unknown]
  - Hospitalisation [Unknown]
  - Abdominal pain [Not Recovered/Not Resolved]
  - Pulmonary arterial hypertension [Fatal]
  - Complication associated with device [Unknown]

NARRATIVE: CASE EVENT DATE: 20170201
